FAERS Safety Report 9776198 (Version 3)
Quarter: 2014Q1

REPORT INFORMATION
  Report Type: Spontaneous
  Country: DE (occurrence: JP)
  Receive Date: 20131220
  Receipt Date: 20140205
  Transmission Date: 20141002
  Serious: Yes (Hospitalization)
  Sender: FDA-Public Use
  Company Number: JP-FRI-1000052403

PATIENT
  Age: 9 Decade
  Sex: Female

DRUGS (3)
  1. MEMANTINE [Suspect]
     Indication: DEMENTIA ALZHEIMER^S TYPE
     Dosage: 10 MG
     Route: 048
  2. MEMANTINE [Suspect]
     Dosage: 5 MG
     Route: 048
  3. ADALAT-CR [Suspect]

REACTIONS (2)
  - Syncope [Recovered/Resolved]
  - Gaze palsy [Recovered/Resolved]
